FAERS Safety Report 8272149-7 (Version None)
Quarter: 2012Q2

REPORT INFORMATION
  Report Type: 
  Country: None (occurrence: None)
  Receive Date: 20120410
  Receipt Date: 20120215
  Transmission Date: 20120825
  Serious: No
  Sender: FDA-Public Use
  Company Number: US-ASTRAZENECA-2012SE10665

PATIENT
  Age: 34 Year
  Sex: Female

DRUGS (6)
  1. COLACE [Concomitant]
  2. LEVOTHYROXINE SODIUM [Concomitant]
  3. PROCHLORPERAZINE MALEATE [Concomitant]
  4. VANDETANIB [Suspect]
     Indication: THYROID CANCER
     Route: 048
  5. CODEINE PHOSPHATE AND ACETAMINOPHEN [Concomitant]
  6. OXYCODONE HCL [Concomitant]

REACTIONS (6)
  - RASH [None]
  - PYREXIA [None]
  - NAUSEA [None]
  - GLOSSODYNIA [None]
  - CHEST PAIN [None]
  - HOT FLUSH [None]
